FAERS Safety Report 20594500 (Version 1)
Quarter: 2022Q1

REPORT INFORMATION
  Report Type: Spontaneous
  Country: US (occurrence: US)
  Receive Date: 20220315
  Receipt Date: 20220315
  Transmission Date: 20220424
  Serious: Yes (Other)
  Sender: FDA-Public Use
  Company Number: US-ALEMBIC PHARMACUETICALS LIMITED-2022SCAL000064

PATIENT

DRUGS (2)
  1. OSELTAMIVIR PHOSPHATE [Suspect]
     Active Substance: OSELTAMIVIR PHOSPHATE
     Indication: Influenza
     Dosage: 75 MILLIGRAM, BID BY MOUTH FOR 5 DAYS
     Route: 048
  2. OSELTAMIVIR PHOSPHATE [Suspect]
     Active Substance: OSELTAMIVIR PHOSPHATE
     Indication: Influenza like illness

REACTIONS (5)
  - Blindness transient [Recovering/Resolving]
  - Acute macular neuroretinopathy [Recovering/Resolving]
  - Visual impairment [Recovering/Resolving]
  - Central vision loss [Recovering/Resolving]
  - Visual field defect [Recovering/Resolving]
